FAERS Safety Report 16074397 (Version 1)
Quarter: 2019Q1

REPORT INFORMATION
  Report Type: Spontaneous
  Country: GB (occurrence: GB)
  Receive Date: 20190314
  Receipt Date: 20190314
  Transmission Date: 20190418
  Serious: Yes (Other)
  Sender: FDA-Public Use
  Company Number: GB-009507513-1903GBR004387

PATIENT
  Age: 39 Year
  Sex: Female
  Weight: 79.37 kg

DRUGS (4)
  1. MIRTAZAPINE. [Suspect]
     Active Substance: MIRTAZAPINE
     Indication: DEPRESSION
     Route: 048
     Dates: start: 20190208, end: 20190216
  2. CERELLE [Concomitant]
     Active Substance: DESOGESTREL
  3. CITALOPRAM [Concomitant]
     Active Substance: CITALOPRAM HYDROBROMIDE
  4. AMLODIPINE [Concomitant]
     Active Substance: AMLODIPINE BESYLATE

REACTIONS (4)
  - Weight increased [Not Recovered/Not Resolved]
  - Dry mouth [Recovered/Resolved]
  - Oedema [Recovered/Resolved]
  - Food craving [Recovered/Resolved]

NARRATIVE: CASE EVENT DATE: 20190210
